FAERS Safety Report 9524146 (Version 1)
Quarter: 2013Q3

REPORT INFORMATION
  Report Type: Spontaneous
  Country: US (occurrence: None)
  Receive Date: 20130912
  Receipt Date: 20130912
  Transmission Date: 20140515
  Serious: No
  Sender: FDA-Public Use
  Company Number: None

PATIENT
  Age: 51 Year
  Sex: Female
  Weight: 70.31 kg

DRUGS (3)
  1. SUCRALFATE [Suspect]
     Indication: DIARRHOEA
     Route: 048
     Dates: start: 20130905, end: 20130908
  2. SUCRALFATE [Suspect]
     Indication: POST PROCEDURAL COMPLICATION
     Route: 048
     Dates: start: 20130905, end: 20130908
  3. SUCRALFATE [Suspect]
     Indication: CHOLECYSTECTOMY
     Route: 048
     Dates: start: 20130905, end: 20130908

REACTIONS (5)
  - Pruritus [None]
  - Arthralgia [None]
  - Musculoskeletal pain [None]
  - Oropharyngeal pain [None]
  - Hypersensitivity [None]
